FAERS Safety Report 12950294 (Version 2)
Quarter: 2016Q4

REPORT INFORMATION
  Report Type: Spontaneous
  Country: GB (occurrence: GB)
  Receive Date: 20161116
  Receipt Date: 20161128
  Transmission Date: 20170207
  Serious: No
  Sender: FDA-Public Use
  Company Number: GB-EXELIXIS-CABO-16007305

PATIENT
  Age: 66 Year
  Sex: Female
  Weight: 78 kg

DRUGS (1)
  1. COMETRIQ [Suspect]
     Active Substance: CABOZANTINIB S-MALATE
     Indication: MEDULLARY THYROID CANCER
     Dosage: 20 MG, QD
     Route: 048
     Dates: start: 20150703

REACTIONS (3)
  - Teeth brittle [Not Recovered/Not Resolved]
  - Dry mouth [Unknown]
  - Tooth fracture [Unknown]

NARRATIVE: CASE EVENT DATE: 20150705
